FAERS Safety Report 10910475 (Version 2)
Quarter: 2015Q3

REPORT INFORMATION
  Report Type: Spontaneous
  Country: US (occurrence: US)
  Receive Date: 20150312
  Receipt Date: 20150806
  Transmission Date: 20151125
  Serious: No
  Sender: FDA-Public Use
  Company Number: US-ABBVIE-15P-163-1337973-00

PATIENT
  Age: 9 Year
  Sex: Male

DRUGS (3)
  1. DEPAKOTE [Suspect]
     Active Substance: DIVALPROEX SODIUM
     Indication: PETIT MAL EPILEPSY
     Dosage: 2 CAPSULES IN THE MORNING AND 1 CAPSULE IN THE EVENING
     Route: 065
     Dates: start: 201404, end: 201410
  2. DEPAKOTE [Suspect]
     Active Substance: DIVALPROEX SODIUM
     Dosage: 2 CAPSULES IN THE MORNING AND 1 CAPSULE IN THE EVENING
     Route: 065
  3. DEPAKOTE [Suspect]
     Active Substance: DIVALPROEX SODIUM
     Indication: PETIT MAL EPILEPSY
     Dosage: 2 TABS IN THE MORNING AND 1 CAPSULE IN THE EVENING
     Route: 065
     Dates: start: 20141017

REACTIONS (1)
  - Alopecia [Not Recovered/Not Resolved]

NARRATIVE: CASE EVENT DATE: 2014
